FAERS Safety Report 9305692 (Version 1)
Quarter: 2013Q2

REPORT INFORMATION
  Report Type: Spontaneous
  Country: US (occurrence: US)
  Receive Date: 20130522
  Receipt Date: 20130522
  Transmission Date: 20140414
  Serious: Yes (Hospitalization, Other)
  Sender: FDA-Public Use
  Company Number: US-RB-054057-13

PATIENT
  Age: 51 Year
  Sex: Female

DRUGS (7)
  1. SUBOXONE FILM [Suspect]
     Route: 060
     Dates: start: 201212, end: 201304
  2. SUBOXONE FILM [Suspect]
     Indication: DRUG DEPENDENCE
     Dosage: VARYING DOSES DURING TAPER
     Route: 060
     Dates: start: 201304, end: 201304
  3. SUBOXONE FILM [Suspect]
     Route: 060
     Dates: start: 201304
  4. SUBOXONE FILM [Suspect]
     Route: 060
     Dates: start: 201211, end: 201212
  5. SEROQUEL [Concomitant]
     Indication: BIPOLAR DISORDER
     Dosage: DOSING DETAILS NOT PROVIDED
     Route: 048
  6. MEDICAL OXYGEN [Concomitant]
     Indication: CHRONIC OBSTRUCTIVE PULMONARY DISEASE
     Dosage: DOSING DETAILS NOT PROVIDED
     Route: 055
  7. NICOTINE [Concomitant]
     Indication: NICOTINE DEPENDENCE
     Dosage: DOSING DETAILS NOT PROVIDED
     Route: 055

REACTIONS (6)
  - Underdose [Recovered/Resolved]
  - Chronic obstructive pulmonary disease [Recovered/Resolved]
  - Hyperhidrosis [Recovered/Resolved]
  - Wrong technique in drug usage process [Recovered/Resolved]
  - Headache [Recovered/Resolved]
  - Overdose [Not Recovered/Not Resolved]
